FAERS Safety Report 8365773-4 (Version None)
Quarter: 2012Q2

REPORT INFORMATION
  Report Type: 
  Country: None (occurrence: None)
  Receive Date: 20120517
  Receipt Date: 20120507
  Transmission Date: 20120825
  Serious: Yes (Other)
  Sender: FDA-Public Use
  Company Number: BR-AMGEN-BRASP2012023732

PATIENT
  Age: 47 Year
  Sex: Female
  Weight: 58 kg

DRUGS (3)
  1. METICORTEN [Concomitant]
     Dosage: 5MG, UNK
  2. ENBREL [Suspect]
     Indication: RHEUMATOID ARTHRITIS
     Dosage: 50 MG, ONCE WEEKLY
     Route: 058
     Dates: start: 20120301, end: 20120101
  3. CALTRATE                           /00751519/ [Concomitant]
     Dosage: 600MG, UNK

REACTIONS (5)
  - ASTHENIA [None]
  - DEPRESSION [None]
  - BLOOD GLUCOSE DECREASED [None]
  - PRURITUS GENERALISED [None]
  - VASCULITIS [None]
